FAERS Safety Report 18339070 (Version 12)
Quarter: 2022Q1

REPORT INFORMATION
  Report Type: Report from Study
  Country: IT (occurrence: IT)
  Receive Date: 20201002
  Receipt Date: 20220222
  Transmission Date: 20220423
  Serious: Yes (Death, Life-Threatening, Hospitalization)
  Sender: FDA-Public Use
  Company Number: IT-FEDR-MF-002-3531001-20200605-0002SG

PATIENT
  Age: 76 Year
  Sex: Male
  Weight: 67 kg

DRUGS (15)
  1. FEDRATINIB [Suspect]
     Active Substance: FEDRATINIB
     Indication: Myelofibrosis
     Dosage: 400 MG X 1 X 1 DAYS
     Route: 048
     Dates: start: 20200110, end: 20200220
  2. FEDRATINIB [Suspect]
     Active Substance: FEDRATINIB
     Dosage: 300 MG X 1 X 1 DAYS
     Route: 048
     Dates: start: 20200221, end: 20200429
  3. FEDRATINIB [Suspect]
     Active Substance: FEDRATINIB
     Dosage: 200 MG X 1 X 1 DAYS
     Route: 048
     Dates: start: 20200430, end: 20200527
  4. FEDRATINIB [Suspect]
     Active Substance: FEDRATINIB
     Dosage: 100 MG X 1 X 1 DAYS
     Route: 048
     Dates: start: 20200528, end: 20200622
  5. BISOPROLOLE [Concomitant]
     Indication: Atrial fibrillation
     Dosage: 2.5 MG X 2 X 1 DAYS
     Route: 048
  6. ALLOPURINOLE [Concomitant]
     Indication: Prophylaxis
     Dosage: 300 MG X 1 X 1 DAYS
     Route: 048
     Dates: start: 20200528
  7. ATORVASTATIN [Concomitant]
     Active Substance: ATORVASTATIN
     Indication: Dyslipidaemia
     Dosage: 10 MG X 1 X 1 DAYS
     Route: 048
     Dates: start: 20180503
  8. BUDESONIDE [Concomitant]
     Active Substance: BUDESONIDE
     Indication: Chronic obstructive pulmonary disease
     Dosage: 200 UG X 2 X 1 DAYS
     Route: 055
     Dates: start: 20160906
  9. CLOREXIDINA [Concomitant]
     Indication: Infection prophylaxis
     Dosage: 0,2 % X 3 X 1 DAYS
     Route: 048
     Dates: start: 20200604
  10. DANAZOLE [Concomitant]
     Indication: Myelofibrosis
     Dosage: 200 MG X 2 X 1 DAYS
     Route: 048
     Dates: start: 20200707
  11. FUROSEMIDE [Concomitant]
     Active Substance: FUROSEMIDE
     Indication: Hypertension
     Dosage: 25 MG X 1 X 1 DAYS
     Route: 048
     Dates: start: 20190509
  12. LEVOTHYROXINE [Concomitant]
     Active Substance: LEVOTHYROXINE
     Indication: Hypothyroidism
     Dosage: 50 UG X 1 X 1 DAYS
     Route: 048
     Dates: start: 20190509
  13. MOVICOL [Concomitant]
     Active Substance: POLYETHYLENE GLYCOL 3350\POTASSIUM CHLORIDE\SODIUM BICARBONATE\SODIUM CHLORIDE
     Indication: Constipation prophylaxis
     Dosage: 13,8 G X OCCASIONAL
     Route: 048
     Dates: start: 20200615
  14. UMECLIDINIO BROMURO [Concomitant]
     Indication: Chronic obstructive pulmonary disease
     Dosage: 55 UG X 1 X 1 DAYS
     Route: 055
     Dates: start: 20200604, end: 202007
  15. VITAMIN B6 [Concomitant]
     Active Substance: PYRIDOXINE HYDROCHLORIDE
     Indication: Hypovitaminosis
     Dosage: 300 MG X 1 X 1 DAYS
     Route: 048
     Dates: start: 20190307

REACTIONS (3)
  - Adenocarcinoma gastric [Not Recovered/Not Resolved]
  - Gastric cancer [Fatal]
  - Gastric ulcer [Not Recovered/Not Resolved]

NARRATIVE: CASE EVENT DATE: 20200604
